FAERS Safety Report 15518318 (Version 2)
Quarter: 2018Q4

REPORT INFORMATION
  Report Type: Spontaneous
  Country: US (occurrence: US)
  Receive Date: 20181017
  Receipt Date: 20181019
  Transmission Date: 20190205
  Serious: Yes (Hospitalization)
  Sender: FDA-Public Use
  Company Number: US-FRESENIUS MEDICAL CARE RENAL THERAPIES GROUP-FMC-1810-001823

PATIENT
  Age: 55 Year
  Sex: Male

DRUGS (20)
  1. DELFLEX [Suspect]
     Active Substance: CALCIUM CHLORIDE\DEXTROSE\MAGNESIUM CHLORIDE\SODIUM CHLORIDE\SODIUM LACTATE
     Indication: END STAGE RENAL DISEASE
     Route: 033
  2. HYDRALAZINE [Concomitant]
     Active Substance: HYDRALAZINE HYDROCHLORIDE
  3. ASCORBIC ACID. [Concomitant]
     Active Substance: ASCORBIC ACID
  4. GABAPENTIN. [Concomitant]
     Active Substance: GABAPENTIN
  5. SEVELAMER [Concomitant]
     Active Substance: SEVELAMER
  6. SODIUM CHLORIDE. [Concomitant]
     Active Substance: SODIUM CHLORIDE
  7. FOLIC ACID. [Concomitant]
     Active Substance: FOLIC ACID
  8. DOCUSATE SODIUM. [Concomitant]
     Active Substance: DOCUSATE SODIUM
  9. PANTOPRAZOLE [Concomitant]
     Active Substance: PANTOPRAZOLE
  10. BUPROPION. [Concomitant]
     Active Substance: BUPROPION
  11. CALCITRIOL. [Concomitant]
     Active Substance: CALCITRIOL
  12. INSULIN [Concomitant]
     Active Substance: INSULIN NOS
  13. LOSARTAN. [Concomitant]
     Active Substance: LOSARTAN
  14. LEVOTHYROXINE. [Concomitant]
     Active Substance: LEVOTHYROXINE
  15. HEPARIN [Concomitant]
     Active Substance: HEPARIN SODIUM
  16. LEVOFLOXACIN. [Concomitant]
     Active Substance: LEVOFLOXACIN
  17. ATORVASTATIN [Concomitant]
     Active Substance: ATORVASTATIN
  18. AMLODIPINE [Concomitant]
     Active Substance: AMLODIPINE BESYLATE
  19. LIOTHYRONINE [Concomitant]
     Active Substance: LIOTHYRONINE
  20. DEFINITY [Concomitant]
     Active Substance: PERFLUTREN

REACTIONS (2)
  - Treatment noncompliance [Recovered/Resolved]
  - Fluid overload [Recovered/Resolved]

NARRATIVE: CASE EVENT DATE: 20181006
